FAERS Safety Report 9937389 (Version 2)
Quarter: 2014Q1

REPORT INFORMATION
  Report Type: Report from Study
  Country: GB (occurrence: GB)
  Receive Date: 20140303
  Receipt Date: 20140303
  Transmission Date: 20141002
  Serious: Yes (Death, Hospitalization, Other)
  Sender: FDA-Public Use
  Company Number: GB-ROCHE-781616

PATIENT
  Age: 74 Year
  Sex: Female
  Weight: 71 kg

DRUGS (9)
  1. RITUXIMAB [Suspect]
     Indication: RHEUMATOID ARTHRITIS
     Route: 065
  2. LEFLUNOMIDE [Concomitant]
     Route: 065
  3. LEFLUNOMIDE [Concomitant]
     Route: 065
  4. METFORMIN [Concomitant]
     Dosage: 500 MG EACH MORNING AND 1 G WITH EVENING MEAL
     Route: 048
  5. OMEPRAZOLE [Concomitant]
     Dosage: EACH MORNING
     Route: 048
  6. NOVOMIX [Concomitant]
     Route: 058
  7. PARACETAMOL [Concomitant]
     Route: 065
  8. CETIRIZINE [Concomitant]
  9. ATENOLOL [Concomitant]

REACTIONS (3)
  - Lung adenocarcinoma [Fatal]
  - Pneumothorax [Recovered/Resolved]
  - Lung neoplasm malignant [Not Recovered/Not Resolved]
